FAERS Safety Report 8062350-X (Version None)
Quarter: 2012Q1

REPORT INFORMATION
  Report Type: 
  Country: None (occurrence: None)
  Receive Date: 20120123
  Receipt Date: 20120118
  Transmission Date: 20120608
  Serious: No
  Sender: FDA-Public Use
  Company Number: US-JNJFOC-20111201174

PATIENT
  Sex: Female
  Weight: 76.2 kg

DRUGS (6)
  1. DIOVAN [Concomitant]
     Indication: HYPERTENSION
     Route: 048
  2. DURAGESIC-100 [Suspect]
     Route: 062
     Dates: start: 20110101, end: 20110101
  3. CLONIDINE [Concomitant]
     Indication: HYPERTENSION
     Route: 048
  4. DURAGESIC-100 [Suspect]
     Indication: SPINAL DISORDER
     Route: 062
     Dates: start: 20110101, end: 20110101
  5. PERCOCET [Concomitant]
     Indication: BREAKTHROUGH PAIN
     Route: 048
  6. METOPROLOL TARTRATE [Concomitant]
     Indication: HYPERTENSION
     Route: 048

REACTIONS (3)
  - DRUG EFFECT INCREASED [None]
  - WRONG TECHNIQUE IN DRUG USAGE PROCESS [None]
  - STUPOR [None]
